FAERS Safety Report 17209744 (Version 1)
Quarter: 2019Q4

REPORT INFORMATION
  Report Type: Report from Study
  Country: IT (occurrence: IT)
  Receive Date: 20191227
  Receipt Date: 20191227
  Transmission Date: 20200122
  Serious: Yes (Hospitalization)
  Sender: FDA-Public Use
  Company Number: IT-PFIZER INC-2019547932

PATIENT
  Age: 72 Year
  Sex: Male

DRUGS (8)
  1. TICAGRELOR. [Concomitant]
     Active Substance: TICAGRELOR
     Dosage: UNK
     Dates: start: 201910
  2. EZETIMIBE/ROSUVASTATIN [Concomitant]
     Active Substance: EZETIMIBE\ROSUVASTATIN
     Dosage: UNK
     Dates: start: 201104
  3. AMLODIPINE [Concomitant]
     Active Substance: AMLODIPINE BESYLATE
     Dosage: UNK
     Dates: start: 201806
  4. FEBUXOSTAT. [Concomitant]
     Active Substance: FEBUXOSTAT
     Dosage: UNK
     Dates: start: 20180802
  5. ADENURIC [Concomitant]
     Active Substance: FEBUXOSTAT
     Dosage: UNK
     Dates: start: 20190930
  6. BOSUTINIB [Suspect]
     Active Substance: BOSUTINIB
     Indication: CHRONIC LYMPHOCYTIC LEUKAEMIA
     Dosage: 400 MG, DAILY
     Route: 048
     Dates: start: 20180819
  7. CARDIOASPIRINA [Concomitant]
     Active Substance: ASPIRIN
     Dosage: UNK
     Dates: start: 201908
  8. LASIX [Concomitant]
     Active Substance: FUROSEMIDE
     Dosage: UNK
     Dates: start: 20180627

REACTIONS (1)
  - Coronary artery occlusion [Recovered/Resolved]

NARRATIVE: CASE EVENT DATE: 20191029
